FAERS Safety Report 7084570-3 (Version None)
Quarter: 2010Q4

REPORT INFORMATION
  Report Type: 
  Country: None (occurrence: None)
  Receive Date: 20101104
  Receipt Date: 20101028
  Transmission Date: 20110411
  Serious: Yes (Death, Other)
  Sender: FDA-Public Use
  Company Number: GB-GENENTECH-284018

PATIENT
  Sex: Male
  Weight: 85.5 kg

DRUGS (8)
  1. RITUXIMAB [Suspect]
     Indication: MANTLE CELL LYMPHOMA
     Dosage: 375 MG/M2, Q3W
     Route: 042
     Dates: start: 20040708, end: 20041117
  2. RITUXIMAB [Suspect]
     Dosage: 375 MG/M2, 1/WEEK
     Route: 042
     Dates: start: 20050114, end: 20050205
  3. RITUXIMAB [Suspect]
     Dosage: 375 MG/M2, Q3W
     Route: 042
     Dates: start: 20070928, end: 20080809
  4. CYCLOPHOSPHAMIDE [Suspect]
     Indication: MANTLE CELL LYMPHOMA
     Dosage: 500 MG, 1/MONTH
     Route: 042
     Dates: start: 20040708, end: 20041117
  5. CYCLOPHOSPHAMIDE [Suspect]
     Dosage: 500 MG/M2, Q3W
     Route: 042
     Dates: start: 20070928, end: 20080809
  6. DOXORUBICIN [Suspect]
     Indication: MANTLE CELL LYMPHOMA
     Dosage: 500 MG/M2, Q3W
     Route: 042
     Dates: start: 20070928, end: 20080809
  7. PREDNISOLONE [Suspect]
     Indication: MANTLE CELL LYMPHOMA
     Dosage: 500 MG, Q3W
     Route: 048
     Dates: start: 20070928, end: 20080809
  8. FLUDARABINE [Suspect]
     Indication: MANTLE CELL LYMPHOMA
     Dosage: 80 MG, 1/MONTH
     Route: 042
     Dates: start: 20040708, end: 20041117

REACTIONS (2)
  - CEREBELLAR SYNDROME [None]
  - PROGRESSIVE MULTIFOCAL LEUKOENCEPHALOPATHY [None]
